FAERS Safety Report 6707906-9 (Version None)
Quarter: 2010Q2

REPORT INFORMATION
  Report Type: 
  Country: None (occurrence: None)
  Receive Date: 20100503
  Receipt Date: 20090403
  Transmission Date: 20101027
  Serious: Yes (Other)
  Sender: FDA-Public Use
  Company Number: US-ASTRAZENECA-2009UW08532

PATIENT
  Age: 73 Year
  Sex: Female
  Weight: 76.7 kg

DRUGS (5)
  1. NEXIUM [Suspect]
     Indication: GASTROOESOPHAGEAL REFLUX DISEASE
     Route: 048
     Dates: start: 20070101
  2. FISH OIL [Concomitant]
  3. M.V.I. [Concomitant]
  4. ZOCOR [Concomitant]
  5. CALCIUM [Concomitant]

REACTIONS (2)
  - BARRETT'S OESOPHAGUS [None]
  - CHEST PAIN [None]
